FAERS Safety Report 15876724 (Version 2)
Quarter: 2019Q1

REPORT INFORMATION
  Report Type: Spontaneous
  Country: US (occurrence: US)
  Receive Date: 20190127
  Receipt Date: 20190314
  Transmission Date: 20190417
  Serious: No
  Sender: FDA-Public Use
  Company Number: US-ASTRAZENECA-2019SE15103

PATIENT
  Age: 60 Year
  Sex: Male
  Weight: 61.2 kg

DRUGS (2)
  1. NEXIUM 24HR [Suspect]
     Active Substance: ESOMEPRAZOLE MAGNESIUM
     Indication: DYSPEPSIA
     Dosage: ABOUT ONCE EVERY 2 MONTHS HE WOULD TAKE 2 CAPSULES DAILY INSTEAD OF JUST ONE
     Route: 048
     Dates: start: 2015
  2. NEXIUM 24HR [Suspect]
     Active Substance: ESOMEPRAZOLE MAGNESIUM
     Indication: DYSPEPSIA
     Route: 048
     Dates: start: 2015

REACTIONS (4)
  - Incorrect product administration duration [Unknown]
  - Malaise [Unknown]
  - Vomiting [Unknown]
  - Extra dose administered [Unknown]

NARRATIVE: CASE EVENT DATE: 2015
